FAERS Safety Report 18505217 (Version 1)
Quarter: 2020Q4

REPORT INFORMATION
  Report Type: Spontaneous
  Country: TR (occurrence: TR)
  Receive Date: 20201116
  Receipt Date: 20201116
  Transmission Date: 20210114
  Serious: Yes (Other)
  Sender: FDA-Public Use
  Company Number: TR-ROCHE-2713006

PATIENT
  Age: 47 Year
  Sex: Male

DRUGS (6)
  1. ACTEMRA [Suspect]
     Active Substance: TOCILIZUMAB
     Indication: COVID-19
     Route: 065
     Dates: start: 20200416, end: 20200416
  2. AVIL [Concomitant]
     Active Substance: PHENIRAMINE
     Dosage: 1X1
     Route: 042
     Dates: start: 20200416, end: 20200416
  3. FAVIPIRAVIR [Concomitant]
     Active Substance: FAVIPIRAVIR
     Dosage: 2X3
     Route: 048
     Dates: start: 20200413
  4. PANTOPRAZOLE 40 [Concomitant]
     Active Substance: PANTOPRAZOLE SODIUM
     Dosage: 1X1 PALIO 40
     Route: 048
     Dates: start: 20200413
  5. PREDNOL [METHYLPREDNISOLONE] [Concomitant]
     Dosage: 1X1
     Route: 042
     Dates: start: 20200416, end: 20200416
  6. CLEXANE [Concomitant]
     Active Substance: ENOXAPARIN SODIUM
     Dosage: 1X1
     Route: 058
     Dates: start: 20200413

REACTIONS (5)
  - Neutropenia [Not Recovered/Not Resolved]
  - Bicytopenia [Not Recovered/Not Resolved]
  - Off label use [Unknown]
  - Lymphopenia [Not Recovered/Not Resolved]
  - Intentional product use issue [Unknown]

NARRATIVE: CASE EVENT DATE: 20200416
